FAERS Safety Report 12302328 (Version 1)
Quarter: 2016Q2

REPORT INFORMATION
  Report Type: Spontaneous
  Country: US (occurrence: US)
  Receive Date: 20160425
  Receipt Date: 20160425
  Transmission Date: 20160815
  Serious: No
  Sender: FDA-Public Use
  Company Number: ALCN2016US002848

PATIENT
  Age: 69 Year
  Sex: Male

DRUGS (2)
  1. SYSTANE GELDROPS [Suspect]
     Active Substance: POLYETHYLENE GLYCOL 400\PROPYLENE GLYCOL
     Indication: DRY EYE
     Dosage: 1-2 GTT, PRN
     Route: 047
     Dates: start: 201602
  2. SYSTANE BALANCE [Suspect]
     Active Substance: PROPYLENE GLYCOL
     Indication: DRY EYE
     Dosage: 1-2 GTT, PRN
     Route: 047
     Dates: start: 201602, end: 201604

REACTIONS (1)
  - Eye irritation [Recovered/Resolved]

NARRATIVE: CASE EVENT DATE: 201602
